FAERS Safety Report 13560030 (Version 1)
Quarter: 2017Q2

REPORT INFORMATION
  Report Type: Spontaneous
  Country: US (occurrence: US)
  Receive Date: 20170518
  Receipt Date: 20170518
  Transmission Date: 20170830
  Serious: No
  Sender: FDA-Public Use
  Company Number: ALCN2017US003385

PATIENT
  Age: 13 Year
  Sex: Female

DRUGS (1)
  1. EYE STREAM [Suspect]
     Active Substance: WATER
     Indication: EYE PRURITUS
     Route: 047

REACTIONS (2)
  - Expired product administered [Unknown]
  - Product use issue [Unknown]
